FAERS Safety Report 19743082 (Version 2)
Quarter: 2021Q3

REPORT INFORMATION
  Report Type: Report from Study
  Country: DE (occurrence: DE)
  Receive Date: 20210824
  Receipt Date: 20210913
  Transmission Date: 20211014
  Serious: Yes (Other)
  Sender: FDA-Public Use
  Company Number: DE-INCYTE CORPORATION-2020IN002990

PATIENT

DRUGS (8)
  1. EXJADE [Suspect]
     Active Substance: DEFERASIROX
     Indication: HYPERFERRITINAEMIA
     Dosage: 720 MG, QD (IN THE MORNING)
     Route: 048
     Dates: start: 20190306
  2. INCB018424 [Suspect]
     Active Substance: RUXOLITINIB
     Indication: PRIMARY MYELOFIBROSIS
     Dosage: 20 MG, BID
     Route: 048
     Dates: start: 20190213
  3. SPIRONOLACTONE. [Concomitant]
     Active Substance: SPIRONOLACTONE
     Indication: ASCITES
     Dosage: UNK, PER DAY
     Route: 065
     Dates: end: 20190925
  4. INCB018424 [Suspect]
     Active Substance: RUXOLITINIB
     Dosage: 10 MG, BID
     Route: 048
     Dates: start: 20190727
  5. DEFERASIROX. [Concomitant]
     Active Substance: DEFERASIROX
     Indication: HYPERFERRITINAEMIA
     Dosage: 720 MG, PER DAY
     Route: 065
     Dates: start: 20190306
  6. TORASEMIDE [Concomitant]
     Active Substance: TORSEMIDE
     Indication: ASCITES
     Dosage: UNK, PER DAY
     Route: 065
     Dates: end: 20190925
  7. SPIRONOLACTONE. [Concomitant]
     Active Substance: SPIRONOLACTONE
     Dosage: 50 MG, PER DAY
     Route: 065
     Dates: start: 20190926
  8. TORASEMIDE [Concomitant]
     Active Substance: TORSEMIDE
     Dosage: 20 MG, PER DAY
     Route: 065
     Dates: start: 20190926

REACTIONS (2)
  - Thrombocytopenia [Recovered/Resolved]
  - Haemorrhage [Unknown]

NARRATIVE: CASE EVENT DATE: 20190819
